FAERS Safety Report 6638630-9 (Version None)
Quarter: 2010Q1

REPORT INFORMATION
  Report Type: 
  Country: None (occurrence: None)
  Receive Date: 20100316
  Receipt Date: 20100316
  Transmission Date: 20100710
  Serious: Yes (Hospitalization)
  Sender: FDA-Public Use
  Company Number: None

PATIENT
  Age: 73 Year
  Sex: Male

DRUGS (2)
  1. SODIUM IODIDE I-131 THERAPEUTIC NOT SPECIFIED NOT SPECIFIED [Suspect]
     Indication: HYPERTHYROIDISM
     Dosage: NOT SPECIFIED
  2. SODIUM IODIDE I-131 THERAPEUTIC NOT SPECIFIED NOT SPECIFIED [Suspect]
     Indication: TOXIC NODULAR GOITRE
     Dosage: NOT SPECIFIED

REACTIONS (2)
  - HYPERTHYROIDISM [None]
  - STRESS CARDIOMYOPATHY [None]
